FAERS Safety Report 4774031-6 (Version None)
Quarter: 2005Q3

REPORT INFORMATION
  Report Type: 
  Country: None (occurrence: None)
  Receive Date: 20050920
  Receipt Date: 20050913
  Transmission Date: 20060218
  Serious: Yes (Death, Other)
  Sender: FDA-Public Use
  Company Number: PHBS2005JP13499

PATIENT
  Age: 21 Year
  Sex: Male
  Weight: 40 kg

DRUGS (1)
  1. CYCLOSPORINE [Suspect]
     Indication: STEM CELL TRANSPLANT
     Route: 048
     Dates: start: 20050101, end: 20050101

REACTIONS (4)
  - CSF LYMPHOCYTE COUNT ABNORMAL [None]
  - DEPRESSED LEVEL OF CONSCIOUSNESS [None]
  - ENCEPHALITIS [None]
  - RENAL IMPAIRMENT [None]
